FAERS Safety Report 19120964 (Version 1)
Quarter: 2021Q2

REPORT INFORMATION
  Report Type: Spontaneous
  Country: GB (occurrence: GB)
  Receive Date: 20210412
  Receipt Date: 20210412
  Transmission Date: 20210717
  Serious: Yes (Other)
  Sender: FDA-Public Use
  Company Number: GB-BRISTOL-MYERS SQUIBB COMPANY-BMS-2021-032345

PATIENT
  Age: 63 Year
  Sex: Female
  Weight: 65.77 kg

DRUGS (4)
  1. KENALOG [Suspect]
     Active Substance: TRIAMCINOLONE ACETONIDE
     Indication: PRODUCT USED FOR UNKNOWN INDICATION
     Dosage: 40MG IN LEFT CARPOMETACARPAL (CMC) JOINT AND 20 MG IN RIGHT CMC JOINT
     Route: 051
     Dates: start: 20210324
  2. ZUMENON [Concomitant]
     Active Substance: ESTRADIOL
     Indication: PRODUCT USED FOR UNKNOWN INDICATION
     Route: 065
  3. LISINOPRIL DIHYDRATE [Concomitant]
     Active Substance: LISINOPRIL
     Indication: PRODUCT USED FOR UNKNOWN INDICATION
     Dosage: 1 MILLIGRAM
     Route: 065
  4. FULTIUM?D3 [Concomitant]
     Active Substance: CHOLECALCIFEROL
     Indication: PRODUCT USED FOR UNKNOWN INDICATION
     Dosage: 1 MILLIGRAM
     Route: 065

REACTIONS (3)
  - Muscle spasms [Not Recovered/Not Resolved]
  - Pruritus [Not Recovered/Not Resolved]
  - Flushing [Recovering/Resolving]

NARRATIVE: CASE EVENT DATE: 20210325
